FAERS Safety Report 5872300-X (Version None)
Quarter: 2008Q3

REPORT INFORMATION
  Report Type: 
  Country: None (occurrence: None)
  Receive Date: 20080905
  Receipt Date: 20080825
  Transmission Date: 20090109
  Serious: Yes (Other)
  Sender: FDA-Public Use
  Company Number: US-BAYER-200813510BCC

PATIENT
  Age: 34 Year
  Sex: Male
  Weight: 100 kg

DRUGS (5)
  1. RID SHAMPOO [Suspect]
     Indication: PROPHYLAXIS
     Route: 061
     Dates: start: 19990101
  2. RID MOUSSE [Suspect]
     Indication: PROPHYLAXIS
     Route: 061
     Dates: start: 19990101
  3. RID HOME LICE CONTROL SPRAY [Suspect]
     Indication: PROPHYLAXIS
     Dates: start: 19990101
  4. BLOOD PRESSURE MEDICATION [Concomitant]
  5. CHOLESTEROL MEDICATION [Concomitant]

REACTIONS (2)
  - HYPERSENSITIVITY [None]
  - SWOLLEN TONGUE [None]
